FAERS Safety Report 15719739 (Version 1)
Quarter: 2018Q4

REPORT INFORMATION
  Report Type: Report from Study
  Country: US (occurrence: US)
  Receive Date: 20181213
  Receipt Date: 20181213
  Transmission Date: 20190205
  Serious: Yes (Other)
  Sender: FDA-Public Use
  Company Number: US-ACTELION-A-NJ2018-168064

PATIENT
  Age: 63 Year
  Sex: Male
  Weight: 130.61 kg

DRUGS (3)
  1. PREDNISONE. [Concomitant]
     Active Substance: PREDNISONE
     Dosage: 20 MG, QD
  2. TADALAFIL. [Concomitant]
     Active Substance: TADALAFIL
  3. OPSUMIT [Suspect]
     Active Substance: MACITENTAN
     Indication: PULMONARY ARTERIAL HYPERTENSION
     Dosage: 10 MG, QD
     Route: 048
     Dates: start: 201710

REACTIONS (16)
  - Scar [Unknown]
  - Gastroenteritis viral [Recovering/Resolving]
  - Weight increased [Unknown]
  - Erythema [Unknown]
  - Condition aggravated [Unknown]
  - Skin haemorrhage [Unknown]
  - Skin graft [Unknown]
  - Product dose omission [Unknown]
  - Basal cell carcinoma [Unknown]
  - Fatigue [Unknown]
  - Skin lesion [Unknown]
  - Skin neoplasm excision [Unknown]
  - Lymphadenectomy [Unknown]
  - Urinary retention [Unknown]
  - Unevaluable event [Unknown]
  - Skin discolouration [Unknown]

NARRATIVE: CASE EVENT DATE: 201801
